FAERS Safety Report 5935848-5 (Version None)
Quarter: 2008Q4

REPORT INFORMATION
  Report Type: 
  Country: None (occurrence: None)
  Receive Date: 20081030
  Receipt Date: 20081017
  Transmission Date: 20090506
  Serious: Yes (Hospitalization, Other)
  Sender: FDA-Public Use
  Company Number: DE-ELI_LILLY_AND_COMPANY-DE200810004598

PATIENT
  Sex: Female
  Weight: 84.5 kg

DRUGS (5)
  1. GEMZAR [Suspect]
     Dosage: 1800 MG, UNKNOWN
     Route: 065
     Dates: start: 20080918
  2. GEMZAR [Suspect]
     Dosage: UNK, UNKNOWN
     Route: 065
     Dates: start: 20080925
  3. GEMZAR [Suspect]
     Dosage: UNK, UNKNOWN
     Route: 065
     Dates: start: 20081002
  4. ACETAMINOPHEN [Concomitant]
     Dosage: 1000 MG, UNKNOWN
     Route: 048
  5. METOCLOPRAMIDE HYDROCHLORIDE [Concomitant]
     Dosage: 30 DROPS
     Route: 048

REACTIONS (3)
  - ORAL MUCOSAL ERUPTION [None]
  - PYREXIA [None]
  - RASH [None]
